FAERS Safety Report 7635387-X (Version None)
Quarter: 2011Q3

REPORT INFORMATION
  Report Type: 
  Country: None (occurrence: None)
  Receive Date: 20110718
  Receipt Date: 20110706
  Transmission Date: 20111222
  Serious: Yes (Hospitalization)
  Sender: FDA-Public Use
  Company Number: FUR-11-11

PATIENT
  Sex: Male

DRUGS (7)
  1. FUROSEMIDE [Suspect]
     Indication: HYPERTENSION
     Dosage: 40MG/DAY
  2. CETIRIZINE HCL [Concomitant]
  3. BISOPROLOL FUMARATE [Concomitant]
  4. POLYETHYLENE GLYCOL [Concomitant]
  5. OLANZAPINE [Concomitant]
  6. FELODIPINE [Concomitant]
  7. TERZOSIN [Concomitant]

REACTIONS (6)
  - ACUTE PRERENAL FAILURE [None]
  - DEHYDRATION [None]
  - GASTROENTERITIS [None]
  - DIABETES INSIPIDUS [None]
  - ABDOMINAL DISTENSION [None]
  - MYOCLONUS [None]
